FAERS Safety Report 8910136 (Version 1)
Quarter: 2012Q4

REPORT INFORMATION
  Report Type: 
  Country: US (occurrence: US)
  Receive Date: 20121114
  Receipt Date: 20121114
  Transmission Date: 20130627
  Serious: No
  Sender: FDA-Public Use
  Company Number: US-ASTRAZENECA-2012SE82993

PATIENT
  Age: 65 Year
  Sex: Female

DRUGS (3)
  1. SYMBICORT PMDI [Suspect]
     Route: 055
  2. PULMICORT FLEXHALER [Suspect]
     Route: 055
  3. ATACAND [Suspect]
     Route: 048

REACTIONS (1)
  - Respiratory disorder [Unknown]
